FAERS Safety Report 16953802 (Version 12)
Quarter: 2020Q1

REPORT INFORMATION
  Report Type: Report from Study
  Country: AU (occurrence: AU)
  Receive Date: 20191023
  Receipt Date: 20200221
  Transmission Date: 20200409
  Serious: Yes (Death, Hospitalization)
  Sender: FDA-Public Use
  Company Number: AU-EISAI MEDICAL RESEARCH-EC-2019-063653

PATIENT
  Age: 68 Year
  Sex: Female
  Weight: 79.15 kg

DRUGS (16)
  1. LEVOTHYROXINE SODIUM. [Concomitant]
     Active Substance: LEVOTHYROXINE SODIUM
     Dates: start: 19900101
  2. PEMBROLIZUMAB. [Suspect]
     Active Substance: PEMBROLIZUMAB
     Indication: ENDOMETRIAL CANCER
     Route: 041
     Dates: start: 20190503, end: 20190905
  3. PANADOL [Concomitant]
     Active Substance: ACETAMINOPHEN
     Dates: start: 20190504
  4. VOLTAREN [Concomitant]
     Active Substance: DICLOFENAC SODIUM
     Dates: start: 20190926
  5. PANADOL [Concomitant]
     Active Substance: ACETAMINOPHEN
     Dates: start: 20190926
  6. LENVATINIB [Suspect]
     Active Substance: LENVATINIB
     Route: 048
     Dates: start: 20190925, end: 20190925
  7. DIABEX [Concomitant]
     Active Substance: METFORMIN HYDROCHLORIDE
     Dates: start: 20190301
  8. CANESTEN [Concomitant]
     Active Substance: CLOTRIMAZOLE
     Dates: start: 20190919, end: 20190922
  9. LENVATINIB [Suspect]
     Active Substance: LENVATINIB
     Indication: ENDOMETRIAL CANCER
     Dosage: STARTING DOSE: 20 MILLIGRAM, FLUCTUATED DOSAGE
     Route: 048
     Dates: start: 20190503, end: 20190924
  10. VITAMIN D (UNSPECIFIED) [Concomitant]
     Active Substance: VITAMIN D NOS
     Dates: start: 20190828
  11. PEMBROLIZUMAB. [Suspect]
     Active Substance: PEMBROLIZUMAB
     Route: 041
     Dates: start: 20190926, end: 20190926
  12. DULOXETINE HYDROCHLORIDE. [Concomitant]
     Active Substance: DULOXETINE HYDROCHLORIDE
     Dates: start: 20090101, end: 20191013
  13. POTASSIUM (UNSPECIFIED) [Concomitant]
     Active Substance: POTASSIUM
     Dates: start: 20180501
  14. AVAPRO [Concomitant]
     Active Substance: IRBESARTAN
     Dates: start: 19900101, end: 20191013
  15. VALACYCLOVIR HYDROCHLORIDE. [Concomitant]
     Active Substance: VALACYCLOVIR HYDROCHLORIDE
     Dates: start: 20190822
  16. MAGNESIUM (UNSPECIFIED) [Concomitant]
     Active Substance: MAGNESIUM
     Dates: start: 20190828

REACTIONS (1)
  - Intestinal obstruction [Not Recovered/Not Resolved]

NARRATIVE: CASE EVENT DATE: 20191005
